FAERS Safety Report 16278939 (Version 4)
Quarter: 2019Q3

REPORT INFORMATION
  Report Type: Report from Study
  Country: US (occurrence: US)
  Receive Date: 20190506
  Receipt Date: 20190926
  Transmission Date: 20191004
  Serious: Yes (Hospitalization)
  Sender: FDA-Public Use
  Company Number: US-ACTELION-A-NJ2019-189960

PATIENT
  Age: 6 Year
  Sex: Female

DRUGS (5)
  1. BOSENTAN TABLET 32 MG PED US [Suspect]
     Active Substance: BOSENTAN
     Indication: PULMONARY HYPERTENSION
     Dosage: 32 MG, BID
     Route: 048
     Dates: start: 20190109
  2. COREG [Concomitant]
     Active Substance: CARVEDILOL
     Dosage: 3.125 MG, BID
     Route: 048
     Dates: start: 20181116
  3. SPIRONOLACTONE. [Concomitant]
     Active Substance: SPIRONOLACTONE
     Dosage: 15 MG, BID
     Route: 048
     Dates: start: 20181116
  4. SILDENAFIL. [Concomitant]
     Active Substance: SILDENAFIL
     Dosage: 15 MG, TID
     Route: 048
     Dates: start: 20180725
  5. ASPIRIN. [Concomitant]
     Active Substance: ASPIRIN
     Dosage: 40 MG, QD
     Route: 048
     Dates: start: 20160802

REACTIONS (4)
  - Catheterisation cardiac [Recovered/Resolved]
  - Dehydration [Not Recovered/Not Resolved]
  - Cardiac operation [Unknown]
  - Pulmonary oedema [Not Recovered/Not Resolved]

NARRATIVE: CASE EVENT DATE: 20190411
